FAERS Safety Report 21692246 (Version 2)
Quarter: 2022Q4

REPORT INFORMATION
  Report Type: Spontaneous
  Country: JP (occurrence: JP)
  Receive Date: 20221207
  Receipt Date: 20221212
  Transmission Date: 20230113
  Serious: Yes (Other)
  Sender: FDA-Public Use
  Company Number: JP-PFIZER INC-PV202200117943

PATIENT
  Age: 50 Year
  Sex: Female
  Weight: 43 kg

DRUGS (5)
  1. FOSPHENYTOIN SODIUM [Suspect]
     Active Substance: FOSPHENYTOIN SODIUM
     Indication: Status epilepticus
     Dosage: 900 MG
     Route: 042
  2. FOSPHENYTOIN SODIUM [Suspect]
     Active Substance: FOSPHENYTOIN SODIUM
     Dosage: 390 MG/DAY (MAINTENANCE DOSE)
     Route: 042
  3. PHENOBARBITAL SODIUM [Suspect]
     Active Substance: PHENOBARBITAL SODIUM
     Indication: Status epilepticus
     Dosage: 625 MG
     Route: 042
  4. PHENOBARBITAL SODIUM [Suspect]
     Active Substance: PHENOBARBITAL SODIUM
     Dosage: 750 MG (MAINTAINED AT)
     Route: 042
  5. PHENOBAL [PHENOBARBITAL SODIUM] [Concomitant]
     Dosage: AT A DOSE OF 120
     Route: 048

REACTIONS (9)
  - Sedation complication [Unknown]
  - Therapeutic product effect incomplete [Unknown]
  - Anticonvulsant drug level above therapeutic [Unknown]
  - Anticonvulsant drug level increased [Unknown]
  - Renal impairment [Unknown]
  - Blood pressure decreased [Unknown]
  - Respiratory depression [Unknown]
  - Oxygen saturation decreased [Unknown]
  - Endotracheal intubation [Unknown]

NARRATIVE: CASE EVENT DATE: 20221128
